FAERS Safety Report 25964694 (Version 2)
Quarter: 2025Q4

REPORT INFORMATION
  Report Type: Spontaneous
  Country: EU (occurrence: EU)
  Receive Date: 20251027
  Receipt Date: 20251106
  Transmission Date: 20260117
  Serious: Yes (Other)
  Sender: UCB
  Company Number: None

PATIENT
  Age: 46 Year
  Weight: 58 kg

DRUGS (9)
  1. LEVETIRACETAM [Suspect]
     Active Substance: LEVETIRACETAM
     Indication: Product used for unknown indication
     Dosage: 3 TABLETS IN THE MORNING AND 3 TABLETS IN THE EVENING
  2. HYDROXYUREA [Suspect]
     Active Substance: HYDROXYUREA
     Indication: Polycythaemia vera
     Dosage: 1000 MILLIGRAM, ONCE DAILY (QD)
  3. XARELTO [Suspect]
     Active Substance: RIVAROXABAN
     Indication: Cerebrovascular accident
     Dosage: 20 MILLIGRAM, ONCE DAILY (QD)1 TABLET IN THE MORNING
  4. DAPAGLIFLOZIN [Suspect]
     Active Substance: DAPAGLIFLOZIN
     Indication: Heart failure with reduced ejection fraction
     Dosage: 10 MILLIGRAM, ONCE DAILY (QD)
  5. IRBESARTAN [Suspect]
     Active Substance: IRBESARTAN
     Indication: Heart failure with reduced ejection fraction
     Dosage: 150 MILLIGRAM, ONCE DAILY (QD) 1 TABLET IN THE MORNING
  6. BISOPROLOL [Suspect]
     Active Substance: BISOPROLOL
     Indication: Product used for unknown indication
     Dosage: 2 TABLETS IN THE MORNING AND 1 TABLET IN THE EVENING
  7. LANSOPRAZOLE [Suspect]
     Active Substance: LANSOPRAZOLE
     Indication: Product used for unknown indication
     Dosage: 1 TABLET IN THE EVENING
  8. DAPAGLIFLOZIN [Suspect]
     Active Substance: DAPAGLIFLOZIN
     Indication: Product used for unknown indication
     Dosage: 1 (DOSAGE FORM) (DAY), 1 TABLET IN THE MORNING
  9. TINZAPARIN [Concomitant]
     Active Substance: TINZAPARIN
     Indication: Product used for unknown indication
     Dosage: UNK

REACTIONS (4)
  - Premature delivery [Not Recovered/Not Resolved]
  - Maternal exposure during pregnancy [Unknown]
  - Abdominal pain [Unknown]
  - Diarrhoea [Unknown]
